FAERS Safety Report 5113801-1 (Version None)
Quarter: 2006Q3

REPORT INFORMATION
  Report Type: 
  Country: None (occurrence: None)
  Receive Date: 20060921
  Receipt Date: 20060921
  Transmission Date: 20061208
  Serious: Yes (Other)
  Sender: FDA-Public Use
  Company Number: None

PATIENT
  Age: 59 Year
  Sex: Female
  Weight: 68.0396 kg

DRUGS (4)
  1. FENTANYL [Suspect]
     Indication: BACK PAIN
     Dosage: 25 MCG 1 PATCH EVERY 72 HOURS
     Dates: start: 20060727, end: 20060802
  2. FENTANYL [Suspect]
     Indication: MUSCULOSKELETAL PAIN
     Dosage: 25 MCG 1 PATCH EVERY 72 HOURS
     Dates: start: 20060727, end: 20060802
  3. FENTANYL [Suspect]
     Indication: NECK PAIN
     Dosage: 25 MCG 1 PATCH EVERY 72 HOURS
     Dates: start: 20060727, end: 20060802
  4. FENTANYL [Suspect]
     Indication: PAIN IN EXTREMITY
     Dosage: 25 MCG 1 PATCH EVERY 72 HOURS
     Dates: start: 20060727, end: 20060802

REACTIONS (15)
  - CHILLS [None]
  - CRYING [None]
  - DEPRESSION [None]
  - DIZZINESS [None]
  - DYSKINESIA [None]
  - DYSURIA [None]
  - FEELING ABNORMAL [None]
  - FORMICATION [None]
  - HYPERHIDROSIS [None]
  - INSOMNIA [None]
  - MALAISE [None]
  - MUSCULAR WEAKNESS [None]
  - NAUSEA [None]
  - PAIN IN EXTREMITY [None]
  - PHARMACEUTICAL PRODUCT COMPLAINT [None]
